FAERS Safety Report 5753408-6 (Version None)
Quarter: 2008Q2

REPORT INFORMATION
  Report Type: 
  Country: None (occurrence: None)
  Receive Date: 20080527
  Receipt Date: 20080513
  Transmission Date: 20081010
  Serious: Yes (Other)
  Sender: FDA-Public Use
  Company Number: LTI2008A00110

PATIENT
  Age: 59 Year
  Sex: Female

DRUGS (2)
  1. ACTOS [Suspect]
     Indication: TYPE 2 DIABETES MELLITUS
     Dosage: 30 MG (30 MG,1 IN 1 D) ORAL, FOR DAYS
     Route: 048
     Dates: start: 20080222, end: 20080323
  2. ATORVASTATIN CALCIUM [Concomitant]

REACTIONS (2)
  - VITREOUS DETACHMENT [None]
  - VITREOUS HAEMORRHAGE [None]
